FAERS Safety Report 8076684-6 (Version None)
Quarter: 2012Q1

REPORT INFORMATION
  Report Type: 
  Country: None (occurrence: None)
  Receive Date: 20120127
  Receipt Date: 20120119
  Transmission Date: 20120608
  Serious: Yes (Hospitalization)
  Sender: FDA-Public Use
  Company Number: KR-BAYER-200826866GPV

PATIENT
  Age: 67 Year
  Sex: Male
  Weight: 58 kg

DRUGS (15)
  1. ONSERAN [Concomitant]
     Indication: ANTIEMETIC SUPPORTIVE CARE
     Dosage: DAILY DOSE 16 MG
     Route: 048
     Dates: start: 20080704, end: 20080909
  2. LASIX [Concomitant]
     Indication: DIURETIC THERAPY
     Dosage: DAILY DOSE 20 MG
     Route: 042
     Dates: start: 20080704, end: 20080904
  3. ZANTAC [Concomitant]
     Indication: ANTACID THERAPY
     Dosage: DAILY DOSE 300 MG
     Route: 048
     Dates: start: 20080704, end: 20080907
  4. MAGNESIUM SULFATE [Concomitant]
     Indication: PROPHYLAXIS
     Dosage: DAILY DOSE 10 ML
     Route: 042
     Dates: start: 20080704, end: 20080904
  5. CISPLATIN [Suspect]
     Dosage: 104 MG DAILY
     Route: 042
     Dates: start: 20080704, end: 20080814
  6. DEXAMETHASONE [Concomitant]
     Indication: ANTIEMETIC SUPPORTIVE CARE
     Dosage: DAILY DOSE 8 MG
     Route: 048
     Dates: start: 20080704, end: 20080907
  7. BISOPROLOL FUMARATE [Concomitant]
     Indication: ISCHAEMIC HEART DISEASE PROPHYLAXIS
     Dosage: DAILY DOSE 1.25 MG
     Route: 048
     Dates: start: 20080826, end: 20080916
  8. SORAFENIB (RAF KINASE INHIBITOR) [Suspect]
     Indication: GASTRIC CANCER
     Dosage: 400 MG, BID
     Dates: start: 20080704, end: 20080920
  9. CAPECITABINE [Suspect]
     Indication: GASTRIC CANCER
     Dosage: 2000 MG DAILY
     Route: 048
     Dates: start: 20080704, end: 20080918
  10. CISPLATIN [Suspect]
     Indication: GASTRIC CANCER
     Dosage: 78 MG DAILY
     Route: 042
     Dates: start: 20080704, end: 20080704
  11. DEXAMETHASONE [Concomitant]
     Dosage: DAILY DOSE 10 MG
     Route: 042
     Dates: start: 20080704, end: 20080904
  12. ONSERAN [Concomitant]
     Dosage: DAILY DOSE 8 MG
     Route: 042
     Dates: start: 20080704, end: 20080904
  13. SIGMART [Concomitant]
     Indication: HYPERTENSION
     Dosage: DAILY DOSE 10 MG
     Route: 048
     Dates: start: 20080826, end: 20080916
  14. POTASSIUM CHLORIDE [Concomitant]
     Indication: PROPHYLAXIS
     Dosage: DAILY DOSE 10 ML
     Route: 042
     Dates: start: 20080704, end: 20080904
  15. HERBEN [Concomitant]
     Indication: ISCHAEMIC HEART DISEASE PROPHYLAXIS
     Dosage: DAILY DOSE 90 MG
     Route: 048
     Dates: start: 20080826, end: 20080916

REACTIONS (1)
  - EMBOLISM ARTERIAL [None]
